FAERS Safety Report 10616569 (Version 2)
Quarter: 2014Q4

REPORT INFORMATION
  Report Type: Spontaneous
  Country: CO (occurrence: CO)
  Receive Date: 20141201
  Receipt Date: 20141201
  Transmission Date: 20150529
  Serious: Yes (Other)
  Sender: FDA-Public Use
  Company Number: CO-PFIZER INC-2014318058

PATIENT
  Age: 11 Year

DRUGS (1)
  1. GENOTROPIN [Suspect]
     Active Substance: SOMATROPIN
     Indication: FAILURE TO THRIVE
     Dosage: 1.0 MG, DAILY
     Route: 058
     Dates: start: 201404, end: 20141004

REACTIONS (2)
  - Mass [Recovering/Resolving]
  - Parotitis [Unknown]

NARRATIVE: CASE EVENT DATE: 201408
